FAERS Safety Report 25917751 (Version 1)
Quarter: 2025Q4

REPORT INFORMATION
  Report Type: Report from Study
  Country: US (occurrence: US)
  Receive Date: 20251014
  Receipt Date: 20251014
  Transmission Date: 20260117
  Serious: Yes (Other)
  Sender: ADAMAS PHARMA
  Company Number: US-ADM-ADM202510-004037

PATIENT
  Age: 38 Year
  Sex: Male

DRUGS (5)
  1. GOCOVRI [Suspect]
     Active Substance: AMANTADINE
     Indication: Dyskinesia
     Dosage: EVERY NIGHT
     Route: 048
  2. GOCOVRI [Suspect]
     Active Substance: AMANTADINE
     Indication: Parkinson^s disease
  3. BOTOX [Concomitant]
     Active Substance: ONABOTULINUMTOXINA
     Dosage: SDV 100 UNIT
  4. BOTOX [Concomitant]
     Active Substance: ONABOTULINUMTOXINA
     Dosage: 100 UNIT
  5. CARBIDOPA\LEVODOPA [Concomitant]
     Active Substance: CARBIDOPA\LEVODOPA
     Dosage: EACH DF CONTAINS 25-100 MG

REACTIONS (2)
  - Erectile dysfunction [Not Recovered/Not Resolved]
  - Product use issue [Unknown]
